FAERS Safety Report 5339665-9 (Version None)
Quarter: 2007Q2

REPORT INFORMATION
  Report Type: 
  Country: None (occurrence: None)
  Receive Date: 20070404
  Receipt Date: 20061107
  Transmission Date: 20071010
  Serious: Yes (Hospitalization)
  Sender: FDA-Public Use
  Company Number: 2006115187

PATIENT
  Age: 40 Year
  Sex: Male
  Weight: 72.5755 kg

DRUGS (3)
  1. GEODON [Suspect]
     Indication: DISEASE RECURRENCE
     Dosage: 60 MG (60 MG, 1 IN 1 D)
     Dates: start: 20060212, end: 20060726
  2. GEODON [Suspect]
     Indication: MAJOR DEPRESSION
     Dosage: 60 MG (60 MG, 1 IN 1 D)
     Dates: start: 20060212, end: 20060726
  3. GEODON [Suspect]
     Indication: PSYCHOTIC DISORDER
     Dosage: 60 MG (60 MG, 1 IN 1 D)
     Dates: start: 20060212, end: 20060726

REACTIONS (1)
  - PRIAPISM [None]
